FAERS Safety Report 21252999 (Version 2)
Quarter: 2022Q3

REPORT INFORMATION
  Report Type: Spontaneous
  Country: US (occurrence: US)
  Receive Date: 20220825
  Receipt Date: 20220906
  Transmission Date: 20221027
  Serious: Yes (Hospitalization, Disabling, Other)
  Sender: FDA-Public Use
  Company Number: US-TEVA-2022-US-2066535

PATIENT
  Age: 8 Decade
  Sex: Male

DRUGS (7)
  1. METHYLPREDNISOLONE [Suspect]
     Active Substance: METHYLPREDNISOLONE
     Indication: Back pain
     Dosage: LUMBAR TRANSFORAMINAL EPIDURAL STEROID INJECTIONS WITH METHYLPREDNISOLONE AT L2 AND L3
     Route: 008
     Dates: start: 201703
  2. METHYLPREDNISOLONE [Suspect]
     Active Substance: METHYLPREDNISOLONE
     Indication: Radiculopathy
     Dosage: LUMBAR TRANSFORAMINAL EPIDURAL STEROID INJECTIONS WITH METHYLPREDNISOLONE AT L2 AND L3
     Route: 008
     Dates: start: 201812
  3. METHYLPREDNISOLONE [Suspect]
     Active Substance: METHYLPREDNISOLONE
     Dosage: LUMBAR TRANSFORAMINAL EPIDURAL STEROID INJECTIONS WITH METHYLPREDNISOLONE AT L2 AND L3
     Route: 008
  4. LIDOCAINE [Concomitant]
     Active Substance: LIDOCAINE
     Indication: Anaesthesia
     Dosage: SKIN WAS ANESTHETIZED BY 1% LIDOCAINE
     Route: 061
  5. OMNIPAQUE [Concomitant]
     Active Substance: IOHEXOL
     Indication: Product used for unknown indication
     Dosage: DOSAGE: 4 ML OF OMNIPAQUE FOR CONTRAST MEDIUM WAS INJECTED UNDER LIVE FLUOROSCOPY.
     Route: 065
  6. OMNIPAQUE [Concomitant]
     Active Substance: IOHEXOL
     Dosage: DOSAGE: 8 ML OF OMNIPAQUE FOR CONTRAST MEDIUM WAS INJECTED UNDER LIVE FLUOROSCOPY.
     Route: 065
  7. BUPIVACAINE [Concomitant]
     Active Substance: BUPIVACAINE
     Indication: Anaesthesia
     Route: 008

REACTIONS (1)
  - Conus medullaris syndrome [Not Recovered/Not Resolved]
